FAERS Safety Report 10417312 (Version 1)
Quarter: 2014Q3

REPORT INFORMATION
  Report Type: Spontaneous
  Country: US (occurrence: US)
  Receive Date: 20140828
  Receipt Date: 20140828
  Transmission Date: 20150326
  Serious: No
  Sender: FDA-Public Use
  Company Number: US-009507513-1408USA002381

PATIENT
  Sex: Female

DRUGS (6)
  1. REMERON [Suspect]
     Active Substance: MIRTAZAPINE
     Indication: ANXIETY
     Dosage: UNK
     Route: 048
  2. LORAZEPAM. [Concomitant]
     Active Substance: LORAZEPAM
     Dosage: SANDOZ^S PRODUCT: LOGO 57 ,0.5 MG, BID
  3. LORAZEPAM. [Concomitant]
     Active Substance: LORAZEPAM
     Dosage: SANDOZ^S PRODUCT: LOGO 197,0.5 MG, BID
  4. LORAZEPAM. [Concomitant]
     Active Substance: LORAZEPAM
     Dosage: 0.5 MG, BID WATSON^S PRODUCT
  5. LORAZEPAM. [Concomitant]
     Active Substance: LORAZEPAM
     Dosage: SANDOZ^S PRODUCT: LOGO 57 0.5 MG, BID
  6. LORAZEPAM. [Concomitant]
     Active Substance: LORAZEPAM
     Dosage: SANDOZ^S PRODUCT: LOGO 57,0.5 MG, BID

REACTIONS (1)
  - Vomiting [Unknown]
